FAERS Safety Report 9664628 (Version 2)
Quarter: 2014Q1

REPORT INFORMATION
  Report Type: Spontaneous
  Country: US (occurrence: US)
  Receive Date: 20131101
  Receipt Date: 20140321
  Transmission Date: 20141002
  Serious: Yes (Hospitalization)
  Sender: FDA-Public Use
  Company Number: US-B.I. PHARMACEUTICALS,INC./RIDGEFIELD-2013-BI-34737BP

PATIENT
  Age: 66 Year
  Sex: Male
  Weight: 127.01 kg

DRUGS (8)
  1. PRADAXA [Suspect]
     Indication: ATRIAL FIBRILLATION
     Dosage: 300 MG
     Route: 065
     Dates: start: 2010, end: 20130225
  2. AMIODARONE [Concomitant]
     Dosage: 100 MG
     Route: 065
  3. METOPROLOL [Concomitant]
     Dosage: 100 MG
     Route: 065
  4. NEURONTIN [Concomitant]
     Route: 065
  5. LASIX [Concomitant]
     Route: 065
  6. TYLENOL [Concomitant]
     Route: 065
  7. LANTUS [Concomitant]
     Dosage: 100 U
     Route: 058
  8. NITRO [Concomitant]
     Route: 060

REACTIONS (2)
  - Gastrointestinal haemorrhage [Unknown]
  - Anaemia [Unknown]
